FAERS Safety Report 10154666 (Version 1)
Quarter: 2014Q2

REPORT INFORMATION
  Report Type: Spontaneous
  Country: US (occurrence: None)
  Receive Date: 20140505
  Receipt Date: 20140505
  Transmission Date: 20141212
  Serious: Yes (Hospitalization)
  Sender: FDA-Public Use
  Company Number: None

PATIENT
  Age: 19 Year
  Sex: Male
  Weight: 75.75 kg

DRUGS (1)
  1. GENERIC LAMICTAL XR [Suspect]
     Route: 048
     Dates: end: 201301

REACTIONS (2)
  - Drug ineffective [None]
  - Product substitution issue [None]
